FAERS Safety Report 9098953 (Version 1)
Quarter: 2013Q1

REPORT INFORMATION
  Report Type: Spontaneous
  Country: US (occurrence: US)
  Receive Date: 20130213
  Receipt Date: 20130213
  Transmission Date: 20140127
  Serious: Yes (Hospitalization)
  Sender: FDA-Public Use
  Company Number: US-ELI_LILLY_AND_COMPANY-US201203005177

PATIENT
  Age: 78 Year
  Sex: Female

DRUGS (2)
  1. FORTEO [Suspect]
     Indication: OSTEOPOROSIS
     Dosage: 20 UG, QD
     Dates: start: 20120308
  2. FORTEO [Suspect]
     Dosage: 20 UG, QD

REACTIONS (8)
  - Hip fracture [Unknown]
  - Fall [Unknown]
  - Wrist fracture [Unknown]
  - Fall [Unknown]
  - General physical health deterioration [Unknown]
  - Fall [Unknown]
  - Wrist fracture [Unknown]
  - Thinking abnormal [Unknown]
